FAERS Safety Report 12878079 (Version 1)
Quarter: 2016Q4

REPORT INFORMATION
  Report Type: Spontaneous
  Country: DE (occurrence: DE)
  Receive Date: 20161024
  Receipt Date: 20161024
  Transmission Date: 20170207
  Serious: Yes (Other)
  Sender: FDA-Public Use
  Company Number: DE-UCBSA-2016040377

PATIENT
  Age: 0 Year
  Sex: Male
  Weight: 4 kg

DRUGS (15)
  1. CIMZIA [Suspect]
     Active Substance: CERTOLIZUMAB PEGOL
     Indication: RHEUMATOID ARTHRITIS
     Dosage: 200 MG, 1 IN 9 DAYS
     Route: 064
     Dates: start: 20150610, end: 20160303
  2. PARACETAMOL [Concomitant]
     Active Substance: ACETAMINOPHEN
     Indication: PAIN
     Dosage: 1000 MG/D (NOT KNOWN IF IT WAS TAKEN DAILY OR AS NEEDED); FROM 28 GW TO 35 GW 1/7
     Route: 064
     Dates: start: 2016, end: 2016
  3. VOMEX A [Concomitant]
     Active Substance: DIMENHYDRINATE
     Indication: NAUSEA
     Dosage: 150 MG/D FROM GW 6 TO 10
     Route: 064
  4. PARACODIN [Concomitant]
     Active Substance: DIHYDROCODEINE BITARTRATE
     Indication: COUGH
     Dosage: 10 MG, ONCE DAILY (QD); IN GW 23 6/7
     Route: 064
     Dates: start: 20151123, end: 20151123
  5. QUENSYL [Concomitant]
     Active Substance: HYDROXYCHLOROQUINE
     Indication: RHEUMATOID ARTHRITIS
     Dosage: 200 MG, ONCE DAILY (QD)
     Route: 064
     Dates: start: 20150610, end: 20160303
  6. IBEROGAST [Concomitant]
     Active Substance: HERBALS
     Indication: NAUSEA
     Dosage: UNK
     Route: 064
  7. CEFACLOR. [Concomitant]
     Active Substance: CEFACLOR
     Indication: BRONCHITIS
     Dosage: 500 MG, ONCE DAILY (QD)
     Route: 064
  8. IBUPROFEN. [Concomitant]
     Active Substance: IBUPROFEN
     Indication: PAIN
     Dosage: 1200 MG/D FOR ABOUT 5 TIMES UNTILL 28 GW
     Route: 064
  9. CLEXANE [Concomitant]
     Active Substance: ENOXAPARIN SODIUM
     Indication: THROMBOSIS PROPHYLAXIS
     Dosage: 40 MG, ONCE DAILY (QD)
     Route: 064
     Dates: start: 20150710, end: 20151026
  10. NAUSEMA [Concomitant]
     Indication: NAUSEA
     Dosage: FROM GW 6 TO 12
     Route: 064
  11. VITAMIN B12 [Concomitant]
     Active Substance: CYANOCOBALAMIN
     Indication: PRODUCT USED FOR UNKNOWN INDICATION
     Dosage: FROM GW 6 TO 12
  12. UTROGEST [Concomitant]
     Active Substance: PROGESTERONE
     Indication: PROPHYLAXIS OF ABORTION
     Dosage: 200 MG, 2X/DAY (BID)
     Route: 064
  13. ERYHEXAL [Concomitant]
     Active Substance: ERYTHROMYCIN
     Indication: BRONCHITIS
     Dosage: 500 MG, 3X/DAY (TID)
     Route: 064
  14. DECORTIN [Concomitant]
     Active Substance: PREDNISONE
     Indication: RHEUMATOID ARTHRITIS
     Dosage: TAKEN IN DIFFERENT DOSE, 7.5 MG/D TO 15 MG/D (STRENGTH: 15 MG/D)
     Route: 064
     Dates: start: 20150610, end: 20160303
  15. VIGANTOLETTEN [Concomitant]
     Active Substance: CHOLECALCIFEROL
     Indication: VITAMIN D DEFICIENCY
     Dosage: 1000 IU, ONCE DAILY (QD)
     Route: 064
     Dates: start: 20150610, end: 20160303

REACTIONS (5)
  - Foetal exposure during pregnancy [Unknown]
  - Agranulocytosis [Recovered/Resolved]
  - Atrial septal defect [Unknown]
  - Hydrothorax [Recovered/Resolved]
  - Bronchiolitis [Unknown]

NARRATIVE: CASE EVENT DATE: 20150610
